FAERS Safety Report 14341761 (Version 1)
Quarter: 2017Q4

REPORT INFORMATION
  Report Type: Spontaneous
  Country: US (occurrence: US)
  Receive Date: 20171229
  Receipt Date: 20171229
  Transmission Date: 20180321
  Serious: Yes (Other)
  Sender: FDA-Public Use
  Company Number: None

PATIENT
  Age: 35 Year
  Sex: Male

DRUGS (4)
  1. FLAGYL [Concomitant]
     Active Substance: METRONIDAZOLE\METRONIDAZOLE HYDROCHLORIDE
  2. PREDNISONE. [Concomitant]
     Active Substance: PREDNISONE
  3. SULFASALAZINE. [Concomitant]
     Active Substance: SULFASALAZINE
  4. STELARA [Suspect]
     Active Substance: USTEKINUMAB
     Indication: CROHN^S DISEASE
     Dosage: STELARA Q8WEEKS SQ
     Route: 058
     Dates: start: 20170523

REACTIONS (2)
  - Staphylococcal infection [None]
  - Fistula [None]

NARRATIVE: CASE EVENT DATE: 20171201
